FAERS Safety Report 25870926 (Version 1)
Quarter: 2025Q4

REPORT INFORMATION
  Report Type: Spontaneous
  Country: US (occurrence: US)
  Receive Date: 20251001
  Receipt Date: 20251001
  Transmission Date: 20260118
  Serious: No
  Sender: TEVA
  Company Number: US-TEVA-VS-3377672

PATIENT
  Age: 61 Year
  Sex: Male

DRUGS (2)
  1. AJOVY [Suspect]
     Active Substance: FREMANEZUMAB-VFRM
     Indication: Product used for unknown indication
     Dosage: 1 SHOT EVERY MONTH
     Route: 065
  2. AJOVY [Suspect]
     Active Substance: FREMANEZUMAB-VFRM
     Dosage: 3 SHOTS AT ONCE EVERY THREE MONTHS
     Route: 065
     Dates: start: 20250916

REACTIONS (1)
  - Therapeutic response shortened [Unknown]
